FAERS Safety Report 9880289 (Version 17)
Quarter: 2018Q2

REPORT INFORMATION
  Report Type: Report from Study
  Country: IT (occurrence: IT)
  Receive Date: 20140207
  Receipt Date: 20180403
  Transmission Date: 20180711
  Serious: Yes (Hospitalization, Disabling)
  Sender: FDA-Public Use
  Company Number: IT-ROCHE-1339656

PATIENT
  Age: 59 Year
  Sex: Female
  Weight: 74 kg

DRUGS (35)
  1. CISPLATIN. [Suspect]
     Active Substance: CISPLATIN
     Indication: DIFFUSE LARGE B-CELL LYMPHOMA
     Dosage: TOTAL NUMBER OF CYCLES RECEIVED BY TIME OF EVENT ONSET: 2
     Route: 042
     Dates: start: 20121016, end: 20121117
  2. DEXAMETHASONE. [Suspect]
     Active Substance: DEXAMETHASONE
     Dosage: TOTAL NUMBER OF CYCLES RECEIVED BY TIME OF EVENT ONSET: 2
     Route: 048
     Dates: start: 20121116, end: 20121120
  3. RITUXIMAB. [Suspect]
     Active Substance: RITUXIMAB
     Dosage: TOTAL NUMBER OF CYCLES RECEIVED BY TIME OF EVENT ONSET: 1,?FREQUENCY : QD.
     Route: 042
     Dates: start: 20121225, end: 20121225
  4. CISPLATIN. [Suspect]
     Active Substance: CISPLATIN
     Route: 065
     Dates: start: 20121117
  5. CYTARABINE. [Suspect]
     Active Substance: CYTARABINE
     Route: 042
     Dates: start: 20121118
  6. ETOPOSIDE. [Suspect]
     Active Substance: ETOPOSIDE
     Dosage: (VEPESID) TOTAL NUMBER OF CYCLES RECEIVED BY TIME OF EVENT ONSET: 1
     Route: 042
     Dates: start: 20130511, end: 20130514
  7. NADROPARIN [Concomitant]
     Active Substance: NADROPARIN
     Indication: THROMBOSIS PROPHYLAXIS
     Dosage: 1 VIAL
     Route: 058
     Dates: start: 20131114, end: 20140107
  8. LENALIDOMIDE [Concomitant]
     Active Substance: LENALIDOMIDE
     Indication: DIFFUSE LARGE B-CELL LYMPHOMA
     Dosage: TOTAL NUMBER OF CYCLES RECEIVED BY TIME OF EVENT ONSET: 1
     Route: 048
     Dates: start: 20131115, end: 20131205
  9. DIBASE [Concomitant]
     Active Substance: CHOLECALCIFEROL
     Indication: VITAMIN SUPPLEMENTATION
     Route: 065
     Dates: start: 20141219
  10. OBINUTUZUMAB. [Suspect]
     Active Substance: OBINUTUZUMAB
     Indication: DIFFUSE LARGE B-CELL LYMPHOMA
     Dosage: DATE OF MOST RECENT DOSE (250 ML WITH DOSE CONCENTRATION OF 4 MG/ML) PRIOR TO SAE: 30/AUG/2012.?TOTA
     Route: 042
     Dates: start: 20120404, end: 20120418
  11. RITUXIMAB. [Suspect]
     Active Substance: RITUXIMAB
     Indication: DIFFUSE LARGE B-CELL LYMPHOMA
     Dosage: TOTAL NUMBER OF CYCLES RECEIVED BY TIME OF EVENT ONSET: 2,?FREQUENCY: ONCE EVERY CYCLE.?600 MG
     Route: 042
     Dates: start: 20121015, end: 20121116
  12. CYTARABINE. [Suspect]
     Active Substance: CYTARABINE
     Indication: DIFFUSE LARGE B-CELL LYMPHOMA
     Dosage: TOTAL NUMBER OF CYCLES RECEIVED BY TIME OF EVENT ONSET: 2
     Route: 042
     Dates: start: 20121017, end: 20121118
  13. MELPHALAN. [Suspect]
     Active Substance: MELPHALAN
     Indication: DIFFUSE LARGE B-CELL LYMPHOMA
     Dosage: TOTAL NUMBER OF CYCLES RECEIVED BY TIME OF EVENT ONSET: 1
     Route: 042
     Dates: start: 20130515, end: 20130515
  14. SULFAMETHOXAZOLE/TRIMETHOPRIM [Concomitant]
     Active Substance: SULFAMETHOXAZOLE\TRIMETHOPRIM
     Indication: PROPHYLAXIS
     Dosage: SULFAMETHOXAZOLE (800 MG) AND TRIMETHOPRIM (160 MG)
     Route: 048
     Dates: start: 20120413, end: 20151211
  15. NADROPARIN [Concomitant]
     Active Substance: NADROPARIN
     Route: 065
     Dates: start: 20140717, end: 20150121
  16. PROVISACOR [Concomitant]
     Active Substance: ROSUVASTATIN
     Indication: HYPERCHOLESTEROLAEMIA
     Route: 048
     Dates: start: 20130919
  17. FULCRO [Concomitant]
     Active Substance: FENOFIBRATE
     Indication: DYSLIPIDAEMIA
     Route: 048
     Dates: start: 20130919
  18. DEPALGOS [Concomitant]
     Active Substance: ACETAMINOPHEN\OXYCODONE HYDROCHLORIDE
     Indication: PAIN
     Route: 065
     Dates: start: 20140717, end: 20140905
  19. CYCLOPHOSPHAMIDE. [Suspect]
     Active Substance: CYCLOPHOSPHAMIDE
     Dosage: TOTAL NUMBER OF CYCLES RECEIVED BY TIME OF EVENT ONSET: 1
     Route: 042
     Dates: start: 20121223, end: 20121223
  20. ETOPOSIDE. [Suspect]
     Active Substance: ETOPOSIDE
     Indication: DIFFUSE LARGE B-CELL LYMPHOMA
     Dosage: TOTAL NUMBER OF CYCLES RECEIVED BY TIME OF EVENT ONSET: 1
     Route: 042
     Dates: start: 20130405, end: 20130405
  21. DEXAMETHASONE. [Suspect]
     Active Substance: DEXAMETHASONE
     Indication: DIFFUSE LARGE B-CELL LYMPHOMA
     Dosage: TOTAL NUMBER OF CYCLES RECEIVED BY TIME OF EVENT ONSET: 2
     Route: 048
     Dates: start: 20121015, end: 20121019
  22. LENALIDOMIDE [Concomitant]
     Active Substance: LENALIDOMIDE
     Dosage: TOTAL NUMBER OF CYCLES RECEIVED BY TIME OF EVENT ONSET: 1
     Route: 048
     Dates: start: 20131211, end: 20131231
  23. RITUXIMAB. [Suspect]
     Active Substance: RITUXIMAB
     Route: 042
     Dates: start: 20121116
  24. DOXORUBICIN [Suspect]
     Active Substance: DOXORUBICIN
     Indication: DIFFUSE LARGE B-CELL LYMPHOMA
     Dosage: DATE OF MOST RECENT DOSE (80 MG, ONCE A CYCLE) PRIOR TO SAE : 19/JUL/2012: 80 MG?TOTAL NUMBER OF CYC
     Route: 042
     Dates: start: 20120404, end: 20120719
  25. VINCRISTINE [Suspect]
     Active Substance: VINCRISTINE
     Indication: DIFFUSE LARGE B-CELL LYMPHOMA
     Dosage: DATE OF MOST RECENT DOSE (2 MG) PRIOR TO SAE: 19/JUL/2012. 2 MG?TOTAL NUMBER OF CYCLES RECEIVED BY T
     Route: 040
     Dates: start: 20120404, end: 20120719
  26. PREDNISONE. [Suspect]
     Active Substance: PREDNISONE
     Indication: DIFFUSE LARGE B-CELL LYMPHOMA
     Dosage: DATE OF MOST RECENT DOSE (100 MG) PRIOR TO SAE : 23JUL/2012.?TOTAL NUMBER OF CYCLES RECEIVED BY TIME
     Route: 048
     Dates: start: 20120404, end: 20120723
  27. ACICLOVIR [Concomitant]
     Active Substance: ACYCLOVIR
     Indication: ANTIVIRAL PROPHYLAXIS
     Route: 048
     Dates: start: 20120412, end: 20151211
  28. METFORMIN [Concomitant]
     Active Substance: METFORMIN HYDROCHLORIDE
     Indication: DIABETES MELLITUS
     Route: 065
     Dates: start: 20151105
  29. PANTOPRAZOLE [Concomitant]
     Active Substance: PANTOPRAZOLE
     Indication: PROPHYLAXIS
     Route: 065
     Dates: start: 20140205, end: 20150121
  30. CYCLOPHOSPHAMIDE. [Suspect]
     Active Substance: CYCLOPHOSPHAMIDE
     Indication: DIFFUSE LARGE B-CELL LYMPHOMA
     Dosage: (ENDOXAN) DATE OF MOST RECENT DOSE (1200 MG) PRIOR TO SAE: 19/JUL/2012: 1200 MG?TOTAL NUMBER OF CYCL
     Route: 042
     Dates: start: 20120404, end: 20120719
  31. CYTARABINE. [Suspect]
     Active Substance: CYTARABINE
     Dosage: TOTAL NUMBER OF CYCLES RECEIVED BY TIME OF EVENT ONSET: 1
     Route: 042
     Dates: start: 20121223, end: 20130128
  32. POTASSIUM CHLORIDE. [Concomitant]
     Active Substance: POTASSIUM CHLORIDE
     Indication: MINERAL SUPPLEMENTATION
     Route: 065
     Dates: start: 20140808, end: 20140814
  33. OBINUTUZUMAB. [Suspect]
     Active Substance: OBINUTUZUMAB
     Dosage: TOTAL NUMBER OF CYCLES RECEIVED BY TIME OF EVENT ONSET: 7,?FREQUENCY : ONCE A CYCLE.
     Route: 042
     Dates: start: 20120426, end: 20120830
  34. MUPHORAN [Suspect]
     Active Substance: FOTEMUSTINE
     Indication: DIFFUSE LARGE B-CELL LYMPHOMA
     Dosage: TOTAL NUMBER OF CYCLES RECEIVED BY TIME OF EVENT ONSET: 1
     Route: 042
     Dates: start: 20130510, end: 20130510
  35. CITALOPRAM [Concomitant]
     Active Substance: CITALOPRAM HYDROBROMIDE
     Indication: ANXIETY
     Route: 065
     Dates: start: 20140205, end: 20140507

REACTIONS (1)
  - Progressive multifocal leukoencephalopathy [Recovered/Resolved with Sequelae]

NARRATIVE: CASE EVENT DATE: 20140117
